FAERS Safety Report 9170415 (Version 2)
Quarter: 2013Q1

REPORT INFORMATION
  Report Type: Spontaneous
  Country: CA (occurrence: CA)
  Receive Date: 20130319
  Receipt Date: 20130329
  Transmission Date: 20140127
  Serious: Yes (Disabling, Other)
  Sender: FDA-Public Use
  Company Number: CA-JNJFOC-20111101102

PATIENT
  Age: 46 Year
  Sex: Female
  Weight: 63 kg

DRUGS (6)
  1. REMICADE [Suspect]
     Indication: CROHN^S DISEASE
     Dosage: TOTAL 33 INFUSIONS
     Route: 042
     Dates: start: 20070813, end: 20120229
  2. BENADRYL [Concomitant]
     Indication: PREMEDICATION
     Route: 042
  3. HYDROCORTISONE [Concomitant]
     Indication: PREMEDICATION
     Route: 042
  4. IMURAN [Concomitant]
     Route: 065
  5. PREDNISONE [Concomitant]
     Route: 065
  6. METHOTREXATE [Concomitant]
     Indication: CROHN^S DISEASE
     Route: 065
     Dates: start: 2007

REACTIONS (4)
  - Multiple sclerosis [Unknown]
  - Eye swelling [Recovered/Resolved]
  - Hypoaesthesia [Not Recovered/Not Resolved]
  - Muscle twitching [Recovered/Resolved]
